FAERS Safety Report 17675102 (Version 1)
Quarter: 2020Q2

REPORT INFORMATION
  Report Type: Spontaneous
  Country: US (occurrence: US)
  Receive Date: 20200415
  Receipt Date: 20200415
  Transmission Date: 20200714
  Serious: No
  Sender: FDA-Public Use
  Company Number: None

PATIENT
  Age: 77 Year
  Sex: Male

DRUGS (2)
  1. LISINOPRIL (LISINOPRIL 10MG TAB) [Suspect]
     Active Substance: LISINOPRIL
     Indication: DIABETES MELLITUS
     Dosage: ?          OTHER DOSE:0.5 TAB;?
     Route: 048
     Dates: start: 20190923, end: 20191107
  2. LISINOPRIL (LISINOPRIL 10MG TAB) [Suspect]
     Active Substance: LISINOPRIL
     Indication: HYPERTENSION
     Dosage: ?          OTHER DOSE:0.5 TAB;?
     Route: 048
     Dates: start: 20190923, end: 20191107

REACTIONS (1)
  - Angioedema [None]

NARRATIVE: CASE EVENT DATE: 20191107
